FAERS Safety Report 5230823-0 (Version None)
Quarter: 2007Q1

REPORT INFORMATION
  Report Type: 
  Country: None (occurrence: None)
  Receive Date: 20070205
  Receipt Date: 20070205
  Transmission Date: 20070707
  Serious: Yes (Hospitalization)
  Sender: FDA-Public Use
  Company Number: None

PATIENT
  Sex: Female
  Weight: 66.9 kg

DRUGS (1)
  1. CYTARABINE [Suspect]
     Dosage: 70 MG

REACTIONS (5)
  - ARACHNOIDITIS [None]
  - CAUDA EQUINA SYNDROME [None]
  - CONDITION AGGRAVATED [None]
  - PLATELET COUNT DECREASED [None]
  - SPINAL CORD HAEMORRHAGE [None]
